FAERS Safety Report 8772160 (Version 2)
Quarter: 2012Q4

REPORT INFORMATION
  Report Type: 
  Country: US (occurrence: US)
  Receive Date: 20120906
  Receipt Date: 20120923
  Transmission Date: 20130627
  Serious: Yes (Hospitalization)
  Sender: FDA-Public Use
  Company Number: US-BIOGENIDEC-2012BI034892

PATIENT
  Age: 33 Year
  Sex: Female

DRUGS (7)
  1. TYSABRI [Suspect]
     Indication: MULTIPLE SCLEROSIS
     Route: 042
     Dates: start: 20100917
  2. VIMPAT [Concomitant]
     Indication: CONVULSION
  3. NEURONTIN [Concomitant]
     Indication: CONVULSION
  4. NEURONTIN [Concomitant]
     Indication: PAIN
  5. VALIUM [Concomitant]
  6. ZOLOFT [Concomitant]
     Indication: DEPRESSION
  7. OPANA ER [Concomitant]
     Indication: PAIN

REACTIONS (3)
  - Convulsion [Recovered/Resolved]
  - Memory impairment [Recovered/Resolved]
  - Malaise [Unknown]
